FAERS Safety Report 5931640-6 (Version None)
Quarter: 2008Q4

REPORT INFORMATION
  Report Type: 
  Country: None (occurrence: None)
  Receive Date: 20081027
  Receipt Date: 20081016
  Transmission Date: 20090506
  Serious: Yes (Other)
  Sender: FDA-Public Use
  Company Number: DE-JNJFOC-20081004712

PATIENT
  Age: 31 Year
  Sex: Male
  Weight: 105 kg

DRUGS (1)
  1. INVEGA [Suspect]
     Indication: DRUG USE FOR UNKNOWN INDICATION
     Dosage: 1 TO 7 TABLETS OF OROS PALIPERIDONE 3 MG (TABLETS, ORAL)
     Route: 048

REACTIONS (1)
  - DRUG ABUSE [None]
